FAERS Safety Report 5803587-7 (Version None)
Quarter: 2008Q3

REPORT INFORMATION
  Report Type: 
  Country: None (occurrence: None)
  Receive Date: 20080703
  Receipt Date: 20080625
  Transmission Date: 20090109
  Serious: Yes (Death, Hospitalization)
  Sender: FDA-Public Use
  Company Number: 2008US001518

PATIENT
  Age: 40 Year
  Sex: Male
  Weight: 64 kg

DRUGS (8)
  1. AMBISOME [Suspect]
     Indication: DISSEMINATED CRYPTOCOCCOSIS
     Dates: start: 20080401
  2. MARAVIROC(MARAVIROC) [Suspect]
     Indication: HIV INFECTION
     Dosage: 150 MG, BID, ORAL
     Route: 048
     Dates: start: 20080225, end: 20080409
  3. MEGESTROL ACETATE [Concomitant]
  4. TENOFOVIR DISOPROXIL FUMARATE [Concomitant]
  5. LAMIVUDINE [Concomitant]
  6. EFAVIRENZ [Concomitant]
  7. FOSAMPRENAVIR (FOSAMPRENAVIR) [Concomitant]
  8. RITONAVIR (RITONAVIR) [Concomitant]

REACTIONS (4)
  - DIALYSIS [None]
  - HYPOXIA [None]
  - NEPHROPATHY TOXIC [None]
  - SPLENOMEGALY [None]
